FAERS Safety Report 4475555-1 (Version None)
Quarter: 2004Q4

REPORT INFORMATION
  Report Type: 
  Country: None (occurrence: None)
  Receive Date: 20041014
  Receipt Date: 20041014
  Transmission Date: 20050328
  Serious: Yes (Disabling)
  Sender: FDA-Public Use
  Company Number: None

PATIENT
  Age: 70 Year
  Sex: Male
  Weight: 67.5 kg

DRUGS (1)
  1. PEMETREXED 500 MG/M2 ELI LILLY [Suspect]
     Indication: MESOTHELIOMA
     Dosage: 1000 MG ONCE INTRAVENOU
     Route: 042
     Dates: start: 20040825, end: 20040922

REACTIONS (2)
  - CORNEAL ABRASION [None]
  - VISUAL DISTURBANCE [None]
